FAERS Safety Report 15471328 (Version 1)
Quarter: 2018Q4

REPORT INFORMATION
  Report Type: Spontaneous
  Country: US (occurrence: US)
  Receive Date: 20181006
  Receipt Date: 20181006
  Transmission Date: 20190205
  Serious: No
  Sender: FDA-Public Use
  Company Number: US-009507513-1810USA000805

PATIENT
  Age: 61 Year
  Sex: Female

DRUGS (14)
  1. SEROQUEL [Concomitant]
     Active Substance: QUETIAPINE FUMARATE
  2. TOPAMAX [Concomitant]
     Active Substance: TOPIRAMATE
  3. LORAZEPAM. [Concomitant]
     Active Substance: LORAZEPAM
  4. BUDESONIDE (+) FORMOTEROL FUMARATE [Concomitant]
     Active Substance: BUDESONIDE\FORMOTEROL FUMARATE
  5. DIOVAN HCT [Concomitant]
     Active Substance: HYDROCHLOROTHIAZIDE\VALSARTAN
  6. SYMBICORT [Concomitant]
     Active Substance: BUDESONIDE\FORMOTEROL FUMARATE DIHYDRATE
  7. PROAIR HFA [Concomitant]
     Active Substance: ALBUTEROL SULFATE
  8. VITAMIN B (UNSPECIFIED) [Concomitant]
     Active Substance: VITAMIN B
  9. SINGULAIR [Concomitant]
     Active Substance: MONTELUKAST SODIUM
  10. AMBIEN [Concomitant]
     Active Substance: ZOLPIDEM TARTRATE
  11. OMEPRAZOLE. [Concomitant]
     Active Substance: OMEPRAZOLE
  12. ASPIRIN. [Concomitant]
     Active Substance: ASPIRIN
  13. JANUVIA [Suspect]
     Active Substance: SITAGLIPTIN PHOSPHATE
     Indication: TYPE 2 DIABETES MELLITUS
     Dosage: 100 MG /ONCE DAILY
     Route: 048
     Dates: start: 201709
  14. METHOCARBAMOL. [Concomitant]
     Active Substance: METHOCARBAMOL

REACTIONS (2)
  - Lymphadenopathy [Recovering/Resolving]
  - Tonsillar hypertrophy [Recovering/Resolving]
